FAERS Safety Report 5124199-7 (Version None)
Quarter: 2006Q4

REPORT INFORMATION
  Report Type: 
  Country: None (occurrence: None)
  Receive Date: 20061010
  Receipt Date: 20060928
  Transmission Date: 20070319
  Serious: Yes (Hospitalization)
  Sender: FDA-Public Use
  Company Number: 2006PK01988

PATIENT
  Age: 85 Year
  Sex: Male

DRUGS (11)
  1. LISINOPRIL [Interacting]
     Indication: ESSENTIAL HYPERTENSION
     Route: 048
     Dates: start: 20060501, end: 20060802
  2. ARICEPT [Interacting]
     Indication: AMNESIA
     Route: 048
     Dates: start: 20060731, end: 20060802
  3. RISPERDAL [Interacting]
     Route: 048
     Dates: start: 20060601, end: 20060802
  4. IMODIUM [Suspect]
     Indication: DIARRHOEA
     Dates: start: 20060727, end: 20060802
  5. FENOFIBRATE [Suspect]
     Indication: HYPERLIPIDAEMIA
     Route: 048
  6. BERODUAL [Suspect]
     Indication: CHRONIC OBSTRUCTIVE PULMONARY DISEASE
     Dates: start: 20060501
  7. ALDACTONE [Concomitant]
     Indication: ESSENTIAL HYPERTENSION
     Route: 048
     Dates: start: 20060501, end: 20060802
  8. ALLOPUR [Concomitant]
     Indication: GOUT
     Route: 048
     Dates: start: 20060501
  9. FOLVITE [Concomitant]
     Route: 048
     Dates: start: 20060501
  10. DISTRANEURIN [Concomitant]
     Indication: INSOMNIA
     Route: 048
     Dates: start: 20060721, end: 20060802
  11. SERETIDE [Concomitant]
     Indication: CHRONIC OBSTRUCTIVE PULMONARY DISEASE
     Dates: start: 20060501

REACTIONS (10)
  - CONFUSIONAL STATE [None]
  - EXTRAPYRAMIDAL DISORDER [None]
  - HYPERKALAEMIA [None]
  - HYPERREFLEXIA [None]
  - HYPONATRAEMIA [None]
  - MIOSIS [None]
  - RENAL FAILURE [None]
  - RHABDOMYOLYSIS [None]
  - SOMNOLENCE [None]
  - TREMOR [None]
